FAERS Safety Report 9123745 (Version 3)
Quarter: 2013Q3

REPORT INFORMATION
  Report Type: Spontaneous
  Country: US (occurrence: US)
  Receive Date: 20130116
  Receipt Date: 20130923
  Transmission Date: 20140515
  Serious: Yes (Life-Threatening, Hospitalization, Disabling)
  Sender: FDA-Public Use
  Company Number: US-BAYER-2013-004499

PATIENT
  Age: 20 Year
  Sex: Female

DRUGS (7)
  1. ANALGESICS [Concomitant]
     Indication: ARTHRALGIA
  2. FLEXERIL [Concomitant]
  3. CELEBREX [Concomitant]
  4. YASMIN [Suspect]
     Indication: MENSTRUATION IRREGULAR
  5. YAZ [Suspect]
  6. BEYAZ [Suspect]
  7. OCELLA [Suspect]

REACTIONS (10)
  - Deep vein thrombosis [None]
  - Deep vein thrombosis [None]
  - Injury [None]
  - Pain [None]
  - General physical health deterioration [None]
  - Anxiety [None]
  - Anhedonia [None]
  - Emotional distress [None]
  - Pain [None]
  - Deep vein thrombosis [None]
